FAERS Safety Report 16717519 (Version 1)
Quarter: 2019Q3

REPORT INFORMATION
  Report Type: Spontaneous
  Country: GB (occurrence: GB)
  Receive Date: 20190819
  Receipt Date: 20190819
  Transmission Date: 20191005
  Serious: Yes (Death, Other)
  Sender: FDA-Public Use
  Company Number: GB-SA-2019SA227750

PATIENT
  Age: 65 Year
  Sex: Male

DRUGS (1)
  1. DOCETAXEL. [Suspect]
     Active Substance: DOCETAXEL
     Indication: NON-SMALL CELL LUNG CANCER
     Dosage: 75 MG/KG/M2

REACTIONS (11)
  - Tumour lysis syndrome [Fatal]
  - Dyspnoea [Unknown]
  - Hypotension [Unknown]
  - Blood uric acid abnormal [Fatal]
  - Blood urea abnormal [Fatal]
  - Blood potassium abnormal [Fatal]
  - Malaise [Unknown]
  - Blood phosphorus abnormal [Fatal]
  - Acute kidney injury [Fatal]
  - Somnolence [Unknown]
  - Blood creatinine abnormal [Fatal]
